FAERS Safety Report 7484452-9 (Version None)
Quarter: 2011Q2

REPORT INFORMATION
  Report Type: 
  Country: None (occurrence: None)
  Receive Date: 20110516
  Receipt Date: 20110516
  Transmission Date: 20111010
  Serious: Yes (Disabling)
  Sender: FDA-Public Use
  Company Number: None

PATIENT
  Age: 3 Year
  Sex: Male
  Weight: 15.8759 kg

DRUGS (2)
  1. FERROUS SUL TAB [Suspect]
     Indication: BLOOD IRON DECREASED
     Dosage: 1 TEASPOON TWICE A DAY PO
     Route: 048
     Dates: start: 20110320, end: 20110329
  2. FERROUS SUL TAB [Suspect]
     Indication: BLOOD IRON DECREASED
     Dosage: 1 TEASPOON TWICE A DAY PO
     Route: 048
     Dates: start: 20110318, end: 20110320

REACTIONS (3)
  - HYPERSENSITIVITY [None]
  - EYE DISORDER [None]
  - PYREXIA [None]
